FAERS Safety Report 20422044 (Version 1)
Quarter: 2022Q1

REPORT INFORMATION
  Report Type: Spontaneous
  Country: QA (occurrence: QA)
  Receive Date: 20220203
  Receipt Date: 20220203
  Transmission Date: 20220424
  Serious: Yes (Other)
  Sender: FDA-Public Use
  Company Number: QA-AMGEN-QATSP2022014803

PATIENT
  Age: 46 Year
  Sex: Female

DRUGS (8)
  1. XGEVA [Suspect]
     Active Substance: DENOSUMAB
     Indication: Metastases to bone
     Dosage: UNK
     Route: 065
  2. GOSERELIN [Concomitant]
     Active Substance: GOSERELIN
  3. LETROZOLE [Concomitant]
     Active Substance: LETROZOLE
  4. LEVOTHYROXINE [Concomitant]
     Active Substance: LEVOTHYROXINE
  5. HYDROCORTISONE [Concomitant]
     Active Substance: HYDROCORTISONE
  6. DESMOPRESSIN [Concomitant]
     Active Substance: DESMOPRESSIN
  7. RIBOCICLIB [Concomitant]
     Active Substance: RIBOCICLIB
  8. FULVESTRANT [Concomitant]
     Active Substance: FULVESTRANT

REACTIONS (9)
  - Diabetes insipidus [Unknown]
  - Metastases to central nervous system [Recovered/Resolved]
  - Breast cancer metastatic [Unknown]
  - Thyroid mass [Unknown]
  - Spinal column injury [Unknown]
  - Metastases to neck [Unknown]
  - Bone lesion [Unknown]
  - Metastases to pituitary gland [Recovered/Resolved]
  - Metastases to lymph nodes [Unknown]

NARRATIVE: CASE EVENT DATE: 20160101
